FAERS Safety Report 7449793-X (Version None)
Quarter: 2011Q2

REPORT INFORMATION
  Report Type: 
  Country: None (occurrence: None)
  Receive Date: 20110421
  Receipt Date: 20110411
  Transmission Date: 20111010
  Serious: Yes (Hospitalization)
  Sender: FDA-Public Use
  Company Number: 888350

PATIENT
  Age: 44 Year
  Sex: Female

DRUGS (10)
  1. AMLODIPINE BESYLATE [Concomitant]
  2. FAMOTIDINE [Concomitant]
  3. PIPERACILLIN AND TAZOBACTAM [Concomitant]
  4. INSULIN [Concomitant]
  5. CLONIDINE [Concomitant]
  6. PHENYTOIN [Suspect]
     Indication: CONVULSION PROPHYLAXIS
     Dosage: 150 MG, EVERY 8 HOURS
  7. SIMVASTATIN [Concomitant]
  8. HYDRALAZINE HCL [Concomitant]
  9. VANCOMYCIN HYDROCHLORIDE [Concomitant]
  10. METOPROLOL SUCCINATE [Concomitant]

REACTIONS (21)
  - VOMITING [None]
  - LEUKOCYTOSIS [None]
  - JAUNDICE [None]
  - INTERNATIONAL NORMALISED RATIO INCREASED [None]
  - HEADACHE [None]
  - LOSS OF CONSCIOUSNESS [None]
  - HAEMORRHAGIC STROKE [None]
  - PSEUDOMONAS TEST POSITIVE [None]
  - NORMOCHROMIC NORMOCYTIC ANAEMIA [None]
  - OLIGURIA [None]
  - RED BLOOD CELL SCHISTOCYTES PRESENT [None]
  - BLOOD BILIRUBIN INCREASED [None]
  - DRUG RASH WITH EOSINOPHILIA AND SYSTEMIC SYMPTOMS [None]
  - FACE OEDEMA [None]
  - HYPOTENSION [None]
  - RENAL IMPAIRMENT [None]
  - LABILE BLOOD PRESSURE [None]
  - NAUSEA [None]
  - PYREXIA [None]
  - THROMBOCYTOPENIA [None]
  - DRUG HYPERSENSITIVITY [None]
